FAERS Safety Report 10698832 (Version 7)
Quarter: 2015Q2

REPORT INFORMATION
  Report Type: Spontaneous
  Country: US (occurrence: US)
  Receive Date: 20150108
  Receipt Date: 20150421
  Transmission Date: 20150821
  Serious: Yes (Disabling, Other)
  Sender: FDA-Public Use
  Company Number: US-009507513-1205USA01848

PATIENT
  Sex: Male
  Weight: 97.51 kg

DRUGS (2)
  1. PROPECIA [Suspect]
     Active Substance: FINASTERIDE
     Indication: ANDROGENETIC ALOPECIA
     Dosage: 1 MG, QD
     Route: 048
     Dates: start: 20100120, end: 20100301
  2. FINASTERIDE. [Suspect]
     Active Substance: FINASTERIDE
     Indication: ANDROGENETIC ALOPECIA
     Dosage: 1 MG, QD
     Route: 048
     Dates: start: 20091214, end: 20100228

REACTIONS (62)
  - Anxiety [Not Recovered/Not Resolved]
  - Sexual dysfunction [Not Recovered/Not Resolved]
  - Penis disorder [Unknown]
  - Prostatitis [Unknown]
  - Androgen insensitivity syndrome [Unknown]
  - Vitreous floaters [Unknown]
  - Muscle spasms [Unknown]
  - Sleep disorder [Not Recovered/Not Resolved]
  - Temperature intolerance [Not Recovered/Not Resolved]
  - Memory impairment [Not Recovered/Not Resolved]
  - Cardiac murmur [Unknown]
  - Ejaculation disorder [Not Recovered/Not Resolved]
  - Ejaculation failure [Not Recovered/Not Resolved]
  - Genital burning sensation [Unknown]
  - Muscle atrophy [Recovering/Resolving]
  - Hormone level abnormal [Unknown]
  - Dihydrotestosterone decreased [Unknown]
  - Oral herpes [Unknown]
  - Hypogonadism [Not Recovered/Not Resolved]
  - Sensitisation [Unknown]
  - Orgasmic sensation decreased [Unknown]
  - Peripheral sensory neuropathy [Unknown]
  - Bone loss [Unknown]
  - Sexual dysfunction [Not Recovered/Not Resolved]
  - Feeling abnormal [Recovering/Resolving]
  - Back injury [Unknown]
  - Headache [Unknown]
  - Proctalgia [Unknown]
  - Blood prolactin decreased [Unknown]
  - Pituitary gonadotropin hyperfunction [Unknown]
  - Head injury [Unknown]
  - Loss of libido [Not Recovered/Not Resolved]
  - Drug ineffective [Unknown]
  - Joint stiffness [Unknown]
  - Mental impairment [Recovering/Resolving]
  - Testicular failure [Unknown]
  - Asthenia [Unknown]
  - Perineal injury [Unknown]
  - Arterial insufficiency [Unknown]
  - Pain of skin [Unknown]
  - Hypothyroidism [Unknown]
  - Confusional state [Not Recovered/Not Resolved]
  - Organic erectile dysfunction [Recovering/Resolving]
  - Suicidal ideation [Unknown]
  - Libido decreased [Not Recovered/Not Resolved]
  - Depression [Recovering/Resolving]
  - Prolactinoma [Unknown]
  - Vision blurred [Unknown]
  - Blood thyroid stimulating hormone increased [Unknown]
  - Testicular pain [Unknown]
  - Cognitive disorder [Recovering/Resolving]
  - Penis disorder [Unknown]
  - Testicular disorder [Unknown]
  - Blepharitis [Recovering/Resolving]
  - Skin lesion [Unknown]
  - Alopecia [Recovering/Resolving]
  - Amnesia [Recovering/Resolving]
  - Upper respiratory tract infection [Unknown]
  - Insomnia [Recovering/Resolving]
  - Flushing [Unknown]
  - Back injury [Unknown]
  - Gynaecomastia [Recovering/Resolving]

NARRATIVE: CASE EVENT DATE: 2010
